FAERS Safety Report 14312033 (Version 3)
Quarter: 2018Q1

REPORT INFORMATION
  Report Type: Spontaneous
  Country: GB (occurrence: GB)
  Receive Date: 20171221
  Receipt Date: 20180103
  Transmission Date: 20180509
  Serious: Yes (Hospitalization)
  Sender: FDA-Public Use
  Company Number: GB-ROCHE-2043022

PATIENT
  Sex: Female

DRUGS (2)
  1. XOLAIR [Suspect]
     Active Substance: OMALIZUMAB
     Dosage: UNK
     Route: 065
     Dates: start: 20171031
  2. XOLAIR [Suspect]
     Active Substance: OMALIZUMAB
     Indication: PRODUCT USED FOR UNKNOWN INDICATION
     Dosage: UNK
     Route: 065
     Dates: start: 20170712

REACTIONS (6)
  - Gait disturbance [Recovered/Resolved]
  - Back pain [Recovered/Resolved]
  - Spinal cord compression [Recovered/Resolved]
  - Anal incontinence [Recovered/Resolved]
  - Intervertebral disc degeneration [Unknown]
  - Thoracic vertebral fracture [Unknown]

NARRATIVE: CASE EVENT DATE: 20171128
